FAERS Safety Report 12844616 (Version 3)
Quarter: 2016Q4

REPORT INFORMATION
  Report Type: Spontaneous
  Country: US (occurrence: US)
  Receive Date: 20161013
  Receipt Date: 20161207
  Transmission Date: 20170207
  Serious: No
  Sender: FDA-Public Use
  Company Number: US-PFIZER INC-2016472566

PATIENT
  Age: 67 Year
  Sex: Female

DRUGS (1)
  1. FLECTOR [Suspect]
     Active Substance: DICLOFENAC EPOLAMINE
     Dosage: 1.3% PATCH
     Route: 061

REACTIONS (5)
  - Dysgeusia [Unknown]
  - Malaise [Unknown]
  - Pruritus [Unknown]
  - Poor quality drug administered [Unknown]
  - Product odour abnormal [Unknown]
